FAERS Safety Report 19704567 (Version 1)
Quarter: 2021Q3

REPORT INFORMATION
  Report Type: Spontaneous
  Country: CN (occurrence: CN)
  Receive Date: 20210816
  Receipt Date: 20210816
  Transmission Date: 20211014
  Serious: Yes (Other)
  Sender: FDA-Public Use
  Company Number: NVSC2021CN182576

PATIENT
  Age: 83 Year
  Sex: Female
  Weight: 60 kg

DRUGS (1)
  1. DEXAMETHASONE,TOBRAMYCIN [Suspect]
     Active Substance: DEXAMETHASONE\TOBRAMYCIN
     Indication: ANTIINFLAMMATORY THERAPY
     Dosage: 1 DRP, TID
     Route: 047
     Dates: start: 20210730, end: 20210730

REACTIONS (2)
  - Eye pain [Recovering/Resolving]
  - Ocular hypertension [Recovering/Resolving]

NARRATIVE: CASE EVENT DATE: 20210730
